FAERS Safety Report 9006164 (Version 3)
Quarter: 2013Q1

REPORT INFORMATION
  Report Type: Spontaneous
  Country: US (occurrence: None)
  Receive Date: 20121226
  Receipt Date: 20130122
  Transmission Date: 20140127
  Serious: Yes (Hospitalization, Other)
  Sender: FDA-Public Use
  Company Number: ADR-2012-02268

PATIENT
  Sex: Male

DRUGS (2)
  1. LIORESAL INTRATHECAL (BACLOFEN INJECTION) 2000MCG/ML [Suspect]
     Indication: MUSCLE SPASTICITY
  2. CYPROHEPTADINE [Concomitant]

REACTIONS (6)
  - Drug withdrawal syndrome [None]
  - Muscle spasticity [None]
  - Pruritus [None]
  - Burning sensation [None]
  - Pain [None]
  - Hyperaesthesia [None]
